FAERS Safety Report 24456310 (Version 2)
Quarter: 2024Q4

REPORT INFORMATION
  Report Type: Report from Study
  Country: US (occurrence: US)
  Receive Date: 20241017
  Receipt Date: 20241018
  Transmission Date: 20250115
  Serious: No
  Sender: ROCHE
  Company Number: US-ROCHE-3510160

PATIENT
  Age: 51 Year
  Sex: Female
  Weight: 88.0 kg

DRUGS (16)
  1. RITUXAN [Suspect]
     Active Substance: RITUXIMAB
     Indication: Dermatomyositis
     Dosage: ANTICIPATED DATE OF TREATMENT REPORTED ON 12/FEB/2024.
     Route: 042
  2. RITUXAN [Suspect]
     Active Substance: RITUXIMAB
     Indication: Respiratory disorder
  3. VITAMIN D3 [Concomitant]
     Active Substance: CHOLECALCIFEROL
  4. MENAQUINONE 6 [Concomitant]
     Active Substance: MENAQUINONE 6
  5. IRON [Concomitant]
     Active Substance: IRON
     Route: 048
  6. NEXIUM [Concomitant]
     Active Substance: ESOMEPRAZOLE MAGNESIUM
  7. VITAMIN B12 [Concomitant]
     Active Substance: CYANOCOBALAMIN
  8. AMLODIPINE [Concomitant]
     Active Substance: AMLODIPINE BESYLATE
     Dosage: 5 MG ORAL
  9. PREDNISONE [Concomitant]
     Active Substance: PREDNISONE
     Dosage: ORAL 20 MG TABLET
  10. ACETAMINOPHEN [Concomitant]
     Active Substance: ACETAMINOPHEN
     Dosage: ORAL 650 MG
  11. DIPHENHYDRAMINE [Concomitant]
     Active Substance: DIPHENHYDRAMINE
     Dosage: IV 25 MG
  12. EPINEPHRINE [Concomitant]
     Active Substance: EPINEPHRINE
     Dosage: IM 0.3 MG PRN
  13. DIPHENHYDRAMINE [Concomitant]
     Active Substance: DIPHENHYDRAMINE
     Dosage: 50 MG PRN IV
  14. FAMOTIDINE [Concomitant]
     Active Substance: FAMOTIDINE
     Dosage: IV 250 MG PRN
  15. HYDROCORTISONE [Concomitant]
     Active Substance: HYDROCORTISONE
     Dosage: IV 100 MG PRN
  16. METHYLPREDNISOLONE [Concomitant]
     Active Substance: METHYLPREDNISOLONE
     Dosage: 125 MG PRN

REACTIONS (2)
  - Off label use [Unknown]
  - No adverse event [Unknown]
